FAERS Safety Report 21183504 (Version 1)
Quarter: 2022Q3

REPORT INFORMATION
  Report Type: Spontaneous
  Country: US (occurrence: US)
  Receive Date: 20220808
  Receipt Date: 20220808
  Transmission Date: 20221027
  Serious: No
  Sender: FDA-Public Use
  Company Number: US-COLGATE PALMOLIVE COMPANY-20210801758

PATIENT
  Sex: Female

DRUGS (1)
  1. COLGATE TOTAL ADVANCED CLEAN [Suspect]
     Active Substance: SODIUM FLUORIDE\TRICLOSAN
     Dosage: UNKNOWN DOSE

REACTIONS (3)
  - Oral discomfort [Unknown]
  - Oral disorder [Unknown]
  - Expired product administered [Unknown]
